FAERS Safety Report 6550121-2 (Version None)
Quarter: 2010Q1

REPORT INFORMATION
  Report Type: 
  Country: None (occurrence: None)
  Receive Date: 20100119
  Receipt Date: 20100110
  Transmission Date: 20100710
  Serious: Yes (Hospitalization)
  Sender: FDA-Public Use
  Company Number: 2009SU0264FU1

PATIENT
  Age: 71 Year
  Sex: Female

DRUGS (2)
  1. NISOLDIPINE [Suspect]
     Dates: end: 20020101
  2. CETIRIZINE HYDROCHLORIDE [Suspect]
     Dates: end: 20020101

REACTIONS (5)
  - BILE DUCT STENOSIS [None]
  - BILIARY DILATATION [None]
  - CHOLANGITIS SCLEROSING [None]
  - GALLBLADDER DISORDER [None]
  - LIVER DISORDER [None]
